FAERS Safety Report 4471953-0 (Version None)
Quarter: 2004Q4

REPORT INFORMATION
  Report Type: 
  Country: None (occurrence: None)
  Receive Date: 20041007
  Receipt Date: 20040924
  Transmission Date: 20050328
  Serious: Yes (Death)
  Sender: FDA-Public Use
  Company Number: 2004236200DE

PATIENT
  Age: 30 Month
  Sex: Male

DRUGS (3)
  1. IDAMYCIN [Suspect]
     Indication: ACUTE MYELOID LEUKAEMIA
     Dosage: 14 MG/M2, CYCLIC, DAYS 3, 4, 5, IV DRIP
     Route: 041
  2. CYTARABINE [Suspect]
     Indication: ACUTE MYELOID LEUKAEMIA
     Dosage: 100 MG/M2, CYCLIC, 2-D INFUSION, DAYS 3,8 , IV DRIP
     Route: 041
  3. ETOPOSIDE [Suspect]
     Indication: ACUTE MYELOID LEUKAEMIA
     Dosage: 150 MG/M2, CYCLIC, DAYS 6, 7, 8, IV DRIP
     Route: 041

REACTIONS (4)
  - APLASIA [None]
  - BONE MARROW DISORDER [None]
  - BRONCHOPULMONARY ASPERGILLOSIS [None]
  - THERAPEUTIC AGENT TOXICITY [None]
